FAERS Safety Report 5817244-4 (Version None)
Quarter: 2008Q3

REPORT INFORMATION
  Report Type: 
  Country: None (occurrence: None)
  Receive Date: 20080722
  Receipt Date: 20080721
  Transmission Date: 20090109
  Serious: Yes (Other)
  Sender: FDA-Public Use
  Company Number: A0738579A

PATIENT
  Age: 25 Year
  Sex: Female
  Weight: 77 kg

DRUGS (2)
  1. ALLI [Suspect]
     Route: 048
     Dates: start: 20080401, end: 20080717
  2. VITAMIN TAB [Concomitant]
     Dates: start: 20080717

REACTIONS (3)
  - ANAL HAEMORRHAGE [None]
  - HAEMORRHAGE [None]
  - RECTAL HAEMORRHAGE [None]
